FAERS Safety Report 9065064 (Version 2)
Quarter: 2013Q2

REPORT INFORMATION
  Report Type: Spontaneous
  Country: JP (occurrence: JP)
  Receive Date: 20130214
  Receipt Date: 20130405
  Transmission Date: 20140414
  Serious: Yes (Disabling, Other)
  Sender: FDA-Public Use
  Company Number: JP-SP-2013-01864

PATIENT
  Age: 79 Year
  Sex: Male

DRUGS (1)
  1. IMMUCYST [Suspect]
     Dosage: 81MG/WEEKLY
     Route: 043
     Dates: start: 20120112, end: 20120301

REACTIONS (1)
  - Epididymitis [Recovering/Resolving]
